FAERS Safety Report 7085099-9 (Version None)
Quarter: 2010Q4

REPORT INFORMATION
  Report Type: 
  Country: None (occurrence: None)
  Receive Date: 20101027
  Receipt Date: 20101020
  Transmission Date: 20110411
  Serious: Yes (Other)
  Sender: FDA-Public Use
  Company Number: 2010SP056059

PATIENT
  Age: 23 Year
  Sex: Male
  Weight: 80 kg

DRUGS (1)
  1. NUVARING [Suspect]
     Indication: CONTRACEPTION

REACTIONS (1)
  - ERECTILE DYSFUNCTION [None]
